FAERS Safety Report 7716352-0 (Version None)
Quarter: 2011Q3

REPORT INFORMATION
  Report Type: 
  Country: None (occurrence: None)
  Receive Date: 20110829
  Receipt Date: 20110822
  Transmission Date: 20111222
  Serious: Yes (Hospitalization)
  Sender: FDA-Public Use
  Company Number: US-JNJFOC-20110811347

PATIENT
  Sex: Female

DRUGS (7)
  1. REMICADE [Suspect]
     Indication: INFLAMMATORY BOWEL DISEASE
     Route: 042
     Dates: start: 20041004, end: 20050603
  2. MERCAPTOPURINE [Concomitant]
  3. FISH OIL [Concomitant]
  4. HUMIRA [Concomitant]
     Dates: start: 20100322
  5. MULTI-VITAMINS [Concomitant]
  6. PREDNISONE [Concomitant]
  7. CIMZIA [Concomitant]

REACTIONS (1)
  - ABDOMINAL PAIN [None]
